FAERS Safety Report 7057358-7 (Version None)
Quarter: 2010Q4

REPORT INFORMATION
  Report Type: 
  Country: None (occurrence: None)
  Receive Date: 20101022
  Receipt Date: 20101013
  Transmission Date: 20110411
  Serious: Yes (Other)
  Sender: FDA-Public Use
  Company Number: JP-ASTRAZENECA-2010SE48472

PATIENT
  Age: 79 Year
  Sex: Female
  Weight: 66 kg

DRUGS (3)
  1. DIPRIVAN [Suspect]
     Indication: INDUCTION OF ANAESTHESIA
     Route: 042
  2. REMIFENTANIL HYDROCHLORIDE [Concomitant]
     Indication: INDUCTION OF ANAESTHESIA
     Dosage: DOSE UNKNOWN
     Route: 042
  3. ROCURONIUM BROMIDE [Concomitant]
     Indication: HYPOTONIA
     Dosage: DOSE UNKNOWN
     Route: 065

REACTIONS (1)
  - STRESS CARDIOMYOPATHY [None]
